FAERS Safety Report 24018268 (Version 1)
Quarter: 2024Q2

REPORT INFORMATION
  Report Type: Spontaneous
  Country: GB (occurrence: GB)
  Receive Date: 20240627
  Receipt Date: 20240627
  Transmission Date: 20240716
  Serious: Yes (Other)
  Sender: FDA-Public Use
  Company Number: GB-MHRA-TPP16470511C10925949YC1718706880354

PATIENT
  Age: 90 Year
  Sex: Female
  Weight: 68 kg

DRUGS (15)
  1. IBUPROFEN [Suspect]
     Active Substance: IBUPROFEN
     Indication: Product used for unknown indication
     Dosage: APPLY 3-4 TIMES A DAY
     Route: 065
     Dates: start: 20240226
  2. COCODAMOL [Concomitant]
     Active Substance: ACETAMINOPHEN\CODEINE PHOSPHATE
     Dosage: TAKE ONE OR TWO TABLETS UP TO FOUR TIMES A DAY,...
     Dates: start: 20240325, end: 20240406
  3. HYDROCORTISONE [Concomitant]
     Active Substance: HYDROCORTISONE\HYDROCORTISONE ACETATE
     Dosage: 1 DOSAGE FORM
     Dates: start: 20240327, end: 20240403
  4. NEFOPAM [Concomitant]
     Active Substance: NEFOPAM
     Dosage: 1 DOSAGE FORM
     Dates: start: 20240409, end: 20240424
  5. PREGABALIN [Concomitant]
     Active Substance: PREGABALIN
     Dosage: 1 DOSAGE FORM
     Dates: start: 20240508, end: 20240605
  6. BUPRENORPHINE [Concomitant]
     Active Substance: BUPRENORPHINE\BUPRENORPHINE HYDROCHLORIDE
     Dosage: 1 DOSAGE FORM, WEEKLY
     Dates: start: 20240529
  7. MIRTAZAPINE [Concomitant]
     Active Substance: MIRTAZAPINE
     Dosage: AT NIGHT
     Dates: start: 20240529
  8. CAPSAICIN [Concomitant]
     Active Substance: CAPSAICIN
     Dosage: APPLY 3-4 TIMES/DAY
     Dates: start: 20240531, end: 20240610
  9. LOSARTAN [Concomitant]
     Active Substance: LOSARTAN
     Dosage: 1 DOSAGE FORM, QD
     Dates: start: 20240226
  10. MINERAL OIL\PARAFFIN [Concomitant]
     Active Substance: MINERAL OIL\PARAFFIN
     Indication: Ill-defined disorder
     Dosage: USE AS DIRECTED
     Dates: start: 20240226
  11. CARBOMER [Concomitant]
     Active Substance: CARBOMER
     Dosage: 1 DOSAGE FORM
     Dates: start: 20240226
  12. VERAPAMIL HYDROCHLORIDE [Concomitant]
     Active Substance: VERAPAMIL HYDROCHLORIDE
     Dosage: AT NIGHT
     Dates: start: 20240226
  13. GABAPENTIN [Concomitant]
     Active Substance: GABAPENTIN
     Dosage: TAKE 1  IN THE MORNING AND LUNCHTIME AND 2 AT N...
     Dates: start: 20240226, end: 20240508
  14. HYPROMELLOSES [Concomitant]
     Active Substance: HYPROMELLOSES
     Dosage: ONE DROP AS NEEDED IN THE AFFECTED EYE/S
     Dates: start: 20240226
  15. ACETAMINOPHEN [Concomitant]
     Active Substance: ACETAMINOPHEN
     Dosage: TAKE 1 OR 2, 4 TIMES/DAY
     Dates: start: 20240226

REACTIONS (1)
  - Angioedema [Recovered/Resolved with Sequelae]

NARRATIVE: CASE EVENT DATE: 20240618
